FAERS Safety Report 23657972 (Version 1)
Quarter: 2024Q1

REPORT INFORMATION
  Report Type: Spontaneous
  Country: CA (occurrence: CA)
  Receive Date: 20240321
  Receipt Date: 20240321
  Transmission Date: 20240410
  Serious: Yes (Death, Other)
  Sender: FDA-Public Use
  Company Number: None

PATIENT
  Age: 43 Year
  Sex: Female

DRUGS (78)
  1. AZELAIC ACID [Suspect]
     Active Substance: AZELAIC ACID
     Indication: Product used for unknown indication
     Dosage: ASKED BUT UNKNOWN?DOSAGE FORM: GEL
  2. SULFASALAZINE [Suspect]
     Active Substance: SULFASALAZINE
     Indication: Rheumatoid arthritis
     Dosage: 1.0 GRAM 1 EVERY 1 DAYS
     Route: 058
  3. SULFASALAZINE [Suspect]
     Active Substance: SULFASALAZINE
     Indication: Rheumatoid arthritis
     Dosage: DOSE 1: 1.0 GRAM 2 EVERY 1 DAYS?DOSE 2: 2.0 GRAM 1 EVERY 1 DAYS?DOSE 3: 100.0 MILLIGRAM?DOSE 4: 300.
     Route: 048
  4. PANTOPRAZOLE [Suspect]
     Active Substance: PANTOPRAZOLE
     Indication: Product used for unknown indication
     Dosage: ASKED BUT UNKNOWN
  5. FOLIC ACID [Suspect]
     Active Substance: FOLIC ACID
     Indication: Rheumatoid arthritis
     Dosage: DOSE 1: 25.0 MG ?DOSE 2: 1.0 MG?DOSE 3: 0.5 MG?DOSE 4: 500.0 MG
     Route: 048
  6. MINOCYCLINE [Suspect]
     Active Substance: MINOCYCLINE HYDROCHLORIDE
     Indication: Product used for unknown indication
     Dosage: ASKED BUT UNKNOWN
  7. ACTEMRA [Suspect]
     Active Substance: TOCILIZUMAB
     Indication: Rheumatoid arthritis
     Dosage: ASKED BUT UNKNOWN?DOSE 1: 3011.2 MG?DOSE 2: 2912.0?DOSE 3: 20.0 MG?DOSE 4: 728.0?DOSE 5: 752.8 EQUIV
     Route: 042
  8. ACTEMRA [Suspect]
     Active Substance: TOCILIZUMAB
     Indication: Rheumatoid arthritis
     Dosage: ASKED BUT UNKNOWN
     Route: 058
  9. ACETAMINOPHEN [Concomitant]
     Active Substance: ACETAMINOPHEN
     Indication: Product used for unknown indication
     Dosage: ASKED BUT UNKNOWN
  10. CETIRIZINE [Suspect]
     Active Substance: CETIRIZINE HYDROCHLORIDE
     Indication: Rheumatoid arthritis
     Dosage: DOSE 1: 25.0 MG?DOSE 2: 10.0 MG
     Route: 048
  11. PREDNISONE [Suspect]
     Active Substance: PREDNISONE
     Indication: Rheumatoid arthritis
     Dosage: DOSE 1: 1.0 MG?DOSE 2: 40.0 MG?DOSE 3: 5.0 MG
     Route: 048
  12. DOMPERIDONE [Suspect]
     Active Substance: DOMPERIDONE
     Indication: Product used for unknown indication
     Dosage: ASKED BUT UNKNOWN
  13. HYDROCORTISONE PROBUTATE [Suspect]
     Active Substance: HYDROCORTISONE PROBUTATE
     Indication: Rheumatoid arthritis
     Dosage: ASKED BUT UNKNOWN
  14. ERGOCALCIFEROL [Suspect]
     Active Substance: ERGOCALCIFEROL
     Indication: Product used for unknown indication
     Dosage: ASKED BUT UNKNOWN
  15. FLUMETHASONE PIVALATE [Suspect]
     Active Substance: FLUMETHASONE PIVALATE
     Indication: Product used for unknown indication
     Dosage: ASKED BUT UNKNOWN?.03%
     Route: 058
  16. DICLOFENAC [Suspect]
     Active Substance: DICLOFENAC
     Indication: Product used for unknown indication
     Dosage: ASKED BUT UNKNOWN
  17. OXYCODONE [Suspect]
     Active Substance: OXYCODONE\OXYCODONE HYDROCHLORIDE
     Indication: Product used for unknown indication
     Dosage: ASKED BUT UNKNOWN
  18. FOSAMAX [Suspect]
     Active Substance: ALENDRONATE SODIUM
     Indication: Rheumatoid arthritis
     Dosage: ASKED BUT UNKNOWN
  19. HYDROXYCHLOROQUINE [Suspect]
     Active Substance: HYDROXYCHLOROQUINE
     Indication: Rheumatoid arthritis
     Dosage: DOSE 1: 400.0 MILLIGRAM 1 EVERY 1 DAYS?DOSE 2: 40.0 MG
     Route: 048
  20. NAPROXEN [Suspect]
     Active Substance: NAPROXEN
     Indication: Rheumatoid arthritis
     Dosage: ASKED BUT UNKNOWN
  21. TOPIRAMATE [Suspect]
     Active Substance: TOPIRAMATE
     Indication: Migraine
     Dosage: DOSE 1: 3.0 MILLIGRAM 1 EVERY 1 DAYS?DOSE 2: 25.0 MILLIGRAM 1 EVERY 2 DAYS?DOSE 3: 25.0 MILLIGRAM 1
  22. PHENYLEPHRINE HYDROCHLORIDE [Suspect]
     Active Substance: PHENYLEPHRINE HYDROCHLORIDE
     Indication: Rheumatoid arthritis
     Dosage: ASKED BUT UNKNOWN?LIQUID INTRAMUSCULAR
     Route: 030
  23. TRAMADOL HYDROCHLORIDE [Suspect]
     Active Substance: TRAMADOL HYDROCHLORIDE
     Indication: Product used for unknown indication
     Dosage: ASKED BUT UNKNOWN
  24. SIMPONI [Suspect]
     Active Substance: GOLIMUMAB
     Indication: Rheumatoid arthritis
     Dosage: ASKED BUT UNKNOWN?SOLUTION SUBCUTANEOUS
     Route: 058
  25. METHYLPREDNISOLONE [Suspect]
     Active Substance: METHYLPREDNISOLONE
     Indication: Product used for unknown indication
     Dosage: ASKED BUT UNKNOWN
  26. ABATACEPT [Suspect]
     Active Substance: ABATACEPT
     Indication: Rheumatoid arthritis
     Dosage: ASKED BUT UNKNOWN
     Route: 042
  27. BERINERT [Suspect]
     Active Substance: HUMAN C1-ESTERASE INHIBITOR
     Indication: Product used for unknown indication
     Dosage: ASKED BUT UNKNOWN
  28. HYDROMORPHONE [Suspect]
     Active Substance: HYDROMORPHONE
     Indication: Product used for unknown indication
     Dosage: ASKED BUT UNKNOWN
  29. PHOSPHORUS [Suspect]
     Active Substance: PHOSPHORUS
     Indication: Product used for unknown indication
     Dosage: ASKED BUT UNKNOWN
  30. VITAMIN C [Suspect]
     Active Substance: ASCORBIC ACID
     Indication: Product used for unknown indication
     Dosage: ASKED BUT UNKNOWN
  31. PSEUDOEPHEDRINE [Suspect]
     Active Substance: PSEUDOEPHEDRINE
     Indication: Rheumatoid arthritis
     Dosage: DOSE 1: 25.0 MG?DOSE 2: 1.0 MG?DOSE 3: 10.0 MG
  32. SARILUMAB [Suspect]
     Active Substance: SARILUMAB
     Indication: Rheumatoid arthritis
     Dosage: ASKED BUT UNKNOWN
  33. GOLD SODIUM THIOMALATE [Suspect]
     Active Substance: GOLD SODIUM THIOMALATE
     Indication: Product used for unknown indication
     Dosage: ASKED BUT UNKNOWN?SOLUTION INTRAMUSCULAR
     Route: 030
  34. SIRUKUMAB [Suspect]
     Active Substance: SIRUKUMAB
     Indication: Product used for unknown indication
     Dosage: ASKED BUT UNKNOWN
  35. AZATHIOPRINE [Suspect]
     Active Substance: AZATHIOPRINE
     Indication: Product used for unknown indication
     Dosage: ASKED BUT UNKNOWN
  36. BUPRENORPHINE [Suspect]
     Active Substance: BUPRENORPHINE
     Indication: Product used for unknown indication
     Dosage: ASKED BUT UNKNOWN
  37. ADALIMUMAB [Suspect]
     Active Substance: ADALIMUMAB\ISOPROPYL ALCOHOL
     Indication: Rheumatoid arthritis
     Dosage: ASKED BUT UNKNOWN?SOLUTION SUBCUTANEOUS
     Route: 058
  38. CALCIUM ASCORBATE [Suspect]
     Active Substance: CALCIUM ASCORBATE
     Indication: Product used for unknown indication
     Dosage: ASKED BUT UNKNOWN
  39. RANITIDINE [Suspect]
     Active Substance: RANITIDINE
     Indication: Rheumatoid arthritis
     Dosage: ASKED BUT UNKNOWN
  40. CHOLECALCIFEROL [Suspect]
     Active Substance: CHOLECALCIFEROL
     Indication: Product used for unknown indication
     Dosage: ASKED BUT UNKNOWN
  41. LEVOMILNACIPRAN [Suspect]
     Active Substance: LEVOMILNACIPRAN
     Indication: Product used for unknown indication
     Dosage: ASKED BUT UNKNOWN
  42. TRAZODONE [Suspect]
     Active Substance: TRAZODONE HYDROCHLORIDE
     Indication: Product used for unknown indication
     Dosage: 1.0 DOSAGE FORMS 1 EVERY 1 DAYS
  43. CORTISONE ACETATE [Suspect]
     Active Substance: CORTISONE ACETATE
     Indication: Rheumatoid arthritis
     Dosage: ASKED BUT UNKNOWN
     Route: 003
  44. TRETINOIN [Suspect]
     Active Substance: TRETINOIN
     Indication: Product used for unknown indication
     Dosage: ASKED BUT UNKNOWN
  45. TRIAMCINOLONE [Suspect]
     Active Substance: TRIAMCINOLONE
     Indication: Product used for unknown indication
     Dosage: ASKED BUT UNKNOWN
  46. RITUXIMAB [Suspect]
     Active Substance: RITUXIMAB
     Indication: Rheumatoid arthritis
     Dosage: ASKED BUT UNKNOWN
     Route: 058
  47. RITUXIMAB [Suspect]
     Active Substance: RITUXIMAB
     Indication: Rheumatoid arthritis
     Dosage: ASKED BUT UNKNOWN
     Route: 042
  48. RITUXIMAB [Suspect]
     Active Substance: RITUXIMAB
     Indication: Rheumatoid arthritis
     Dosage: ASKED BUT UNKNOWN
  49. RITUXIMAB [Suspect]
     Active Substance: RITUXIMAB
     Indication: Rheumatoid arthritis
     Dosage: ASKED BUT UNKNOWN
     Route: 043
  50. XELJANZ [Suspect]
     Active Substance: TOFACITINIB CITRATE
     Indication: Rheumatoid arthritis
     Dosage: 5.0 MILLIGRAM 2 EVERY 1 DAYS
  51. LAMOTRIGINE [Suspect]
     Active Substance: LAMOTRIGINE
     Indication: Product used for unknown indication
     Dosage: DOSE 1: 25.0 MILLIGRAM 1 EVERY 2 DAYS?DOSE 2: 50.0 MILLIGRAM 1 EVERY 2 DAYS
     Route: 048
  52. CANDESARTAN [Suspect]
     Active Substance: CANDESARTAN
     Indication: Migraine
     Dosage: ASKED BUT UNKNOWN
     Route: 048
  53. CANDESARTAN [Suspect]
     Active Substance: CANDESARTAN
     Indication: Rheumatoid arthritis
     Dosage: ASKED BUT UNKNOWN
     Route: 048
  54. BOTULINUM TOXIN TYPE A [Suspect]
     Active Substance: BOTULINUM TOXIN TYPE A
     Indication: Product used for unknown indication
     Dosage: ASKED BUT UNKNOWN?POWDER FOR SOLUTION
     Route: 030
  55. FLUTICASONE [Suspect]
     Active Substance: FLUTICASONE
     Indication: Product used for unknown indication
     Dosage: ASKED BUT UNKNOWN
  56. INFLIXIMAB [Suspect]
     Active Substance: INFLIXIMAB
     Indication: Rheumatoid arthritis
     Dosage: ASKED BUT UNKNOWN
     Route: 042
  57. AIMOVIG [Suspect]
     Active Substance: ERENUMAB-AOOE
     Indication: Migraine
     Dosage: ASKED BUT UNKNOWN?SOLUTION
  58. AIMOVIG [Suspect]
     Active Substance: ERENUMAB-AOOE
     Indication: Rheumatoid arthritis
     Dosage: ASKED BUT UNKNOWN?SOLUTION
  59. CELECOXIB [Suspect]
     Active Substance: CELECOXIB
     Indication: Product used for unknown indication
     Dosage: 2.0 DOSAGE FORMS 1 EVERY 1 DAYS
  60. ATOMOXETINE [Suspect]
     Active Substance: ATOMOXETINE\ATOMOXETINE HYDROCHLORIDE
     Indication: Migraine
     Dosage: 1.0 DOSAGE FORMS 1 EVERY 2 DAYS
  61. COSENTYX [Suspect]
     Active Substance: SECUKINUMAB
     Indication: Psoriatic arthropathy
     Dosage: ASKED BUT UNKNOWN
  62. BETAMETHASONE [Suspect]
     Active Substance: BETAMETHASONE\BETAMETHASONE DIPROPIONATE
     Indication: Product used for unknown indication
     Dosage: ASKED BUT UNKNOWN
  63. METHOTREXATE [Suspect]
     Active Substance: METHOTREXATE
     Indication: Rheumatoid arthritis
     Dosage: DOSE 1: 25.0 MILLIGRAM 1 EVERY 1 WEEKS?DOSE 2: 20.0 MILLIGRAM 1 EVERY 1 DAYS
     Route: 048
  64. CYCLOBENZAPRINE [Suspect]
     Active Substance: CYCLOBENZAPRINE
     Indication: Product used for unknown indication
     Dosage: 1.0 DOSAGE FORMS 1 EVERY 1 DAYS
  65. DESOXIMETASONE [Suspect]
     Active Substance: DESOXIMETASONE
     Indication: Rheumatoid arthritis
     Dosage: ASKED BUT UNKNOWN
     Route: 058
  66. DESOXIMETASONE [Suspect]
     Active Substance: DESOXIMETASONE
     Indication: Rheumatoid arthritis
     Dosage: ASKED BUT UNKNOWN
     Route: 048
  67. STELARA [Suspect]
     Active Substance: USTEKINUMAB
     Indication: Product used for unknown indication
     Dosage: SOLUTION SUBCUTANEOUS
     Route: 058
  68. MYRBETRIQ [Suspect]
     Active Substance: MIRABEGRON
     Indication: Product used for unknown indication
     Dosage: 1.0 DOSAGE FORMS 1 EVERY 1 DAYS
     Route: 048
  69. NUCALA [Suspect]
     Active Substance: MEPOLIZUMAB
     Indication: Product used for unknown indication
     Dosage: ASKED BUT UNKNOWN
  70. MAGNESIUM [Suspect]
     Active Substance: MAGNESIUM
     Indication: Product used for unknown indication
     Dosage: ASKED BUT UNKNOWN
  71. CIMZIA [Suspect]
     Active Substance: CERTOLIZUMAB PEGOL
     Indication: Rheumatoid arthritis
     Dosage: ASKED BUT UNKNOWN
     Route: 058
  72. CIMZIA [Suspect]
     Active Substance: CERTOLIZUMAB PEGOL
     Indication: Psoriasis
     Dosage: ASKED BUT UNKNOWN
     Route: 058
  73. RAMIPRIL [Suspect]
     Active Substance: RAMIPRIL
     Indication: Rheumatoid arthritis
     Dosage: ASKED BUT UNKNOWN
     Route: 042
  74. RAMIPRIL [Suspect]
     Active Substance: RAMIPRIL
     Indication: Rheumatoid arthritis
     Dosage: ASKED BUT UNKNOWN
     Route: 016
  75. ACETAMINOPHEN AND CODEINE [Suspect]
     Active Substance: ACETAMINOPHEN\CODEINE PHOSPHATE
     Indication: Rheumatoid arthritis
     Dosage: ASKED BUT UNKNOWN
  76. PHTHALYLSULFATHIAZOLE [Suspect]
     Active Substance: PHTHALYLSULFATHIAZOLE
     Indication: Rheumatoid arthritis
     Dosage: ASKED BUT UNKNOWN
     Route: 048
  77. ETANERCEPT [Suspect]
     Active Substance: ETANERCEPT
     Indication: Rheumatoid arthritis
     Dosage: 50.0 MILLIGRAM 1 EVERY 1 WEEKS
     Route: 058
  78. OTEZLA [Suspect]
     Active Substance: APREMILAST
     Indication: Product used for unknown indication
     Dosage: 3.0 MILLIGRAM 2 EVERY 1 DAYS

REACTIONS (99)
  - Blepharospasm [Unknown]
  - Asthenia [Unknown]
  - Abdominal pain upper [Unknown]
  - Injury [Unknown]
  - Vomiting [Unknown]
  - Blood cholesterol increased [Unknown]
  - Type 2 diabetes mellitus [Unknown]
  - Nasopharyngitis [Unknown]
  - Hypercholesterolaemia [Unknown]
  - Folliculitis [Unknown]
  - Pain in extremity [Unknown]
  - Therapeutic product effect incomplete [Unknown]
  - Systemic lupus erythematosus [Unknown]
  - Pericarditis [Unknown]
  - Diarrhoea [Unknown]
  - Wound infection [Unknown]
  - Alopecia [Unknown]
  - Dizziness [Unknown]
  - Muscle spasms [Unknown]
  - Lower respiratory tract infection [Unknown]
  - Blister [Unknown]
  - Contraindicated product administered [Unknown]
  - Lung disorder [Unknown]
  - Duodenal ulcer perforation [Unknown]
  - Drug intolerance [Unknown]
  - Helicobacter infection [Unknown]
  - Pain [Unknown]
  - Lip dry [Unknown]
  - Osteoarthritis [Unknown]
  - Muscle injury [Unknown]
  - Anti-cyclic citrullinated peptide antibody positive [Unknown]
  - Therapeutic product effect decreased [Unknown]
  - General physical health deterioration [Unknown]
  - Memory impairment [Unknown]
  - Swelling [Unknown]
  - Live birth [Unknown]
  - Epilepsy [Unknown]
  - Back injury [Unknown]
  - Taste disorder [Unknown]
  - Muscular weakness [Unknown]
  - Treatment failure [Unknown]
  - Weight increased [Recovering/Resolving]
  - Irritable bowel syndrome [Unknown]
  - Product use issue [Unknown]
  - Wound [Unknown]
  - Nausea [Unknown]
  - Pemphigus [Unknown]
  - Infusion related reaction [Unknown]
  - Peripheral venous disease [Unknown]
  - Intentional product use issue [Unknown]
  - Synovitis [Unknown]
  - Paraesthesia [Unknown]
  - Hypoaesthesia [Unknown]
  - Obesity [Unknown]
  - Fibromyalgia [Unknown]
  - Bursitis [Unknown]
  - Urticaria [Unknown]
  - Liver function test increased [Unknown]
  - Musculoskeletal pain [Unknown]
  - Hand deformity [Unknown]
  - Product quality issue [Unknown]
  - Depression [Unknown]
  - Glossodynia [Unknown]
  - Hepatic enzyme increased [Unknown]
  - Joint range of motion decreased [Unknown]
  - Arthropathy [Unknown]
  - Impaired healing [Unknown]
  - Abdominal discomfort [Unknown]
  - Dry mouth [Unknown]
  - C-reactive protein increased [Unknown]
  - Peripheral swelling [Unknown]
  - Liver injury [Unknown]
  - Arthralgia [Unknown]
  - Drug ineffective [Unknown]
  - Night sweats [Unknown]
  - Drug hypersensitivity [Unknown]
  - Stomatitis [Unknown]
  - Maternal exposure during pregnancy [Unknown]
  - Mobility decreased [Unknown]
  - Facet joint syndrome [Unknown]
  - Breast cancer stage III [Fatal]
  - Neck pain [Unknown]
  - Gastrooesophageal reflux disease [Unknown]
  - Rheumatic fever [Unknown]
  - Inflammation [Unknown]
  - Rheumatoid arthritis [Unknown]
  - Pneumonia [Unknown]
  - Joint swelling [Unknown]
  - Infusion site reaction [Unknown]
  - Gait inability [Unknown]
  - Hypertension [Unknown]
  - Rash [Unknown]
  - Psoriatic arthropathy [Unknown]
  - Product use in unapproved indication [Unknown]
  - Wheezing [Unknown]
  - Onychomadesis [Unknown]
  - Confusional state [Unknown]
  - Sleep disorder [Unknown]
  - Nail disorder [Unknown]
